FAERS Safety Report 4697060-X (Version None)
Quarter: 2005Q2

REPORT INFORMATION
  Report Type: 
  Country: None (occurrence: None)
  Receive Date: 20050622
  Receipt Date: 20050603
  Transmission Date: 20051028
  Serious: Yes (Hospitalization)
  Sender: FDA-Public Use
  Company Number: PHBS2005JP08091

PATIENT
  Age: 24 Year
  Sex: Male
  Weight: 120 kg

DRUGS (6)
  1. VOLTAREN [Suspect]
     Indication: BACK PAIN
     Dosage: 25 MG/DAY
     Route: 048
     Dates: start: 20050105, end: 20050505
  2. CONTOMIN [Suspect]
     Indication: INSOMNIA
     Dosage: 150 MG/DAY
     Route: 048
  3. VITAMIN A [Suspect]
     Indication: INSOMNIA
     Dosage: 4 TAB/DAY
     Route: 048
     Dates: start: 20050105, end: 20050505
  4. BENZALIN [Suspect]
     Indication: INSOMNIA
     Dosage: 30 MG/DAY
     Route: 048
     Dates: start: 20050105, end: 20050505
  5. NEULEPTIL [Suspect]
     Indication: INSOMNIA
     Dosage: 5 MG/DAY
     Route: 048
     Dates: start: 20050105, end: 20050505
  6. DEPAS [Suspect]
     Indication: INSOMNIA
     Dosage: 0.5 MG/DAY
     Route: 048
     Dates: start: 20050105, end: 20050505

REACTIONS (8)
  - ACUTE RESPIRATORY FAILURE [None]
  - ASPARTATE AMINOTRANSFERASE INCREASED [None]
  - BLOOD CREATINE PHOSPHOKINASE INCREASED [None]
  - COMA [None]
  - DRUG LEVEL INCREASED [None]
  - DRUG TOXICITY [None]
  - NEUROLEPTIC MALIGNANT SYNDROME [None]
  - PYREXIA [None]
